FAERS Safety Report 13093622 (Version 1)
Quarter: 2017Q1

REPORT INFORMATION
  Report Type: Report from Study
  Country: None (occurrence: JP)
  Receive Date: 20170106
  Receipt Date: 20170106
  Transmission Date: 20170428
  Serious: Yes (Hospitalization)
  Sender: FDA-Public Use
  Company Number: JP-BIO-PHARM, INC -1061612

PATIENT
  Age: 82 Year
  Sex: Female

DRUGS (1)
  1. MEMANTINE HCL ORAL SOLUTION [Suspect]
     Active Substance: MEMANTINE

REACTIONS (2)
  - Myoclonus [None]
  - Loss of consciousness [Unknown]

NARRATIVE: CASE EVENT DATE: 20161106
